FAERS Safety Report 6153454-7 (Version None)
Quarter: 2009Q2

REPORT INFORMATION
  Report Type: 
  Country: None (occurrence: None)
  Receive Date: 20090413
  Receipt Date: 20090403
  Transmission Date: 20091009
  Serious: Yes (Other)
  Sender: FDA-Public Use
  Company Number: ES-AMGEN-US342503

PATIENT
  Age: 36 Year
  Sex: Male

DRUGS (3)
  1. ENBREL [Suspect]
     Indication: RHEUMATOID ARTHRITIS
     Dosage: UNKNOWN
     Route: 065
     Dates: start: 20030701, end: 20080201
  2. ENBREL [Suspect]
     Indication: FELTY'S SYNDROME
  3. RITUXIMAB [Concomitant]
     Route: 065
     Dates: start: 20080301

REACTIONS (5)
  - DRUG INEFFECTIVE [None]
  - INFECTION [None]
  - MYOCARDIAL ISCHAEMIA [None]
  - NEUTROPENIA [None]
  - PERICARDITIS [None]
